FAERS Safety Report 5149284-5 (Version None)
Quarter: 2006Q4

REPORT INFORMATION
  Report Type: 
  Country: None (occurrence: None)
  Receive Date: 20061113
  Receipt Date: 20061024
  Transmission Date: 20070319
  Serious: Yes (Hospitalization)
  Sender: FDA-Public Use
  Company Number: CN-GLAXOSMITHKLINE-B0444514A

PATIENT
  Age: 40 Year
  Sex: Male

DRUGS (3)
  1. HEPTODIN [Suspect]
     Dosage: 100MG PER DAY
     Route: 048
     Dates: start: 20041001, end: 20060301
  2. HEPTODIN [Suspect]
     Dosage: 100MG PER DAY
     Route: 048
     Dates: start: 20060506
  3. ADEFOVIR DIPIVOXIL KIT [Concomitant]
     Dosage: 10MG PER DAY
     Route: 048
     Dates: start: 20061014

REACTIONS (6)
  - ALANINE AMINOTRANSFERASE INCREASED [None]
  - HBV DNA INCREASED [None]
  - HEPATITIS [None]
  - JAUNDICE [None]
  - NAUSEA [None]
  - VOMITING [None]
